FAERS Safety Report 12656139 (Version 8)
Quarter: 2017Q1

REPORT INFORMATION
  Report Type: Report from Study
  Country: JP (occurrence: JP)
  Receive Date: 20160816
  Receipt Date: 20170103
  Transmission Date: 20170428
  Serious: Yes (Hospitalization)
  Sender: FDA-Public Use
  Company Number: JP-PFIZER INC-2016374584

PATIENT
  Age: 67 Year
  Sex: Male
  Weight: 62 kg

DRUGS (15)
  1. BEVACIZUMAB [Suspect]
     Active Substance: BEVACIZUMAB
     Indication: NON-SMALL CELL LUNG CANCER
     Dosage: 942 MG, EVERY 21 DAYS
     Route: 042
     Dates: start: 20160524, end: 20160726
  2. LOXOPROFEN SODIUM [Concomitant]
     Active Substance: LOXOPROFEN SODIUM
     Indication: HEADACHE
     Dosage: UNK
     Dates: start: 20160811, end: 20160818
  3. PACLITAXEL. [Suspect]
     Active Substance: PACLITAXEL
     Indication: NON-SMALL CELL LUNG CANCER
     Dosage: 270 MG, EVERY 21 DAYS
     Route: 042
     Dates: start: 20160524, end: 20160726
  4. ZANTAC [Concomitant]
     Active Substance: RANITIDINE HYDROCHLORIDE
     Indication: PREMEDICATION
     Dosage: 100 MG SINGLE
     Route: 042
     Dates: start: 20160726, end: 20160726
  5. METHYCOBAL [Concomitant]
     Active Substance: METHYLCOBALAMIN
     Indication: PERIPHERAL SENSORY NEUROPATHY
     Dosage: 1500 UG THRICE DAILY
     Route: 048
     Dates: start: 20160705
  6. FILGRASTIM [Concomitant]
     Active Substance: FILGRASTIM
     Indication: FEBRILE NEUTROPENIA
     Dosage: UNK
     Dates: start: 20160805, end: 20160805
  7. COCARL [Concomitant]
     Active Substance: ACETAMINOPHEN
     Indication: ABDOMINAL PAIN
     Dosage: 400 MG SINGLE
     Route: 048
     Dates: start: 20160801, end: 20160801
  8. COCARL [Concomitant]
     Active Substance: ACETAMINOPHEN
     Indication: PYREXIA
     Dosage: UNK
     Route: 048
     Dates: start: 20160803, end: 20160814
  9. VENA [Concomitant]
     Active Substance: DIPHENHYDRAMINE HYDROCHLORIDE
     Indication: PREMEDICATION
     Dosage: 10 MG SINGLE
     Route: 048
     Dates: start: 20160726, end: 20160726
  10. DEXART [Concomitant]
     Active Substance: DEXAMETHASONE SODIUM PHOSPHATE
     Indication: PREMEDICATION
     Dosage: 19.8 MG SINGLE
     Route: 042
     Dates: start: 20160726, end: 20160726
  11. SEIROGAN [Concomitant]
     Indication: DIARRHOEA
     Dosage: 3 TABLETS SINGLE
     Route: 048
     Dates: start: 20160801, end: 20160801
  12. SLOW K [Concomitant]
     Active Substance: POTASSIUM CHLORIDE
     Indication: HYPOKALAEMIA
     Dosage: UNK
     Dates: start: 20160808, end: 20160811
  13. ALOXI [Concomitant]
     Active Substance: PALONOSETRON HYDROCHLORIDE
     Indication: PREMEDICATION
     Dosage: 0.75 MG SINGLE
     Route: 042
     Dates: start: 20160726, end: 20160726
  14. CARBOPLATIN. [Suspect]
     Active Substance: CARBOPLATIN
     Indication: NON-SMALL CELL LUNG CANCER
     Dosage: 615 MG, EVERY 21 DAYS
     Route: 042
     Dates: start: 20160524, end: 20160726
  15. KCL [Concomitant]
     Active Substance: POTASSIUM CHLORIDE
     Indication: HYPOKALAEMIA
     Dosage: UNK
     Dates: start: 20160807, end: 20160810

REACTIONS (2)
  - Enterocolitis infectious [Recovered/Resolved]
  - Pleural infection [Recovered/Resolved]

NARRATIVE: CASE EVENT DATE: 20160803
